FAERS Safety Report 15631181 (Version 2)
Quarter: 2018Q4

REPORT INFORMATION
  Report Type: Spontaneous
  Country: DE (occurrence: DE)
  Receive Date: 20181119
  Receipt Date: 20181206
  Transmission Date: 20190205
  Serious: Yes (Other)
  Sender: FDA-Public Use
  Company Number: DE-TEVA-2018-DE-974627

PATIENT
  Age: 81 Year
  Sex: Male

DRUGS (18)
  1. PANTOPRAZOL 40 [Suspect]
     Active Substance: PANTOPRAZOLE SODIUM
     Indication: PROPHYLAXIS AGAINST GASTROINTESTINAL ULCER
     Dosage: 40 MILLIGRAM DAILY; AS NEEDED IN THE MORNING
     Route: 065
     Dates: start: 2018
  2. LANTUS [Suspect]
     Active Substance: INSULIN GLARGINE
     Dosage: 24 IU (INTERNATIONAL UNIT) DAILY; 24 TO NIGHT
     Route: 065
     Dates: start: 2018
  3. TAMSULOSIN [Suspect]
     Active Substance: TAMSULOSIN
     Dosage: .4 MILLIGRAM DAILY; 0.4 EVENING
     Route: 065
     Dates: start: 2014
  4. CALCITRIOL. [Concomitant]
     Active Substance: CALCITRIOL
     Dates: start: 2014
  5. ALLOPURINOL 100 [Suspect]
     Active Substance: ALLOPURINOL
     Route: 065
     Dates: start: 2014
  6. AMLODIPIN 5 [Suspect]
     Active Substance: AMLODIPINE BESYLATE
     Dosage: 5 MILLIGRAM DAILY; EVENING
     Route: 065
     Dates: start: 2018
  7. SIMVASTATIN 40 [Suspect]
     Active Substance: SIMVASTATIN
     Dosage: 40 MILLIGRAM DAILY; EVENING
     Route: 065
     Dates: start: 2014
  8. AMLODIPIN 5 [Suspect]
     Active Substance: AMLODIPINE BESYLATE
     Dosage: INTAKE IN THE MORNING AND EVENING
     Route: 065
     Dates: start: 2014
  9. NOVORAPID [Suspect]
     Active Substance: INSULIN ASPART
     Dosage: IN THE MORNING, NOON AND EVENING ACCORDING TO YOUR OWN CALCULATION BETWEEN 8 AND 40 IU PER TIME BEFO
     Dates: start: 2012
  10. LANTUS [Suspect]
     Active Substance: INSULIN GLARGINE
     Route: 065
     Dates: start: 2014
  11. VALSARTAN HEXAL 160 [Suspect]
     Active Substance: VALSARTAN
     Dosage: AM
     Dates: start: 2014
  12. ALLOPURINOL 100 [Suspect]
     Active Substance: ALLOPURINOL
     Dosage: 100 MILLIGRAM DAILY; AM
     Route: 065
     Dates: start: 2018
  13. ASS 100 [Suspect]
     Active Substance: ASPIRIN
     Dosage: 100 MILLIGRAM DAILY; AM
     Route: 065
     Dates: start: 2014
  14. TORASEMID 20 [Suspect]
     Active Substance: TORSEMIDE
     Dosage: 40 MILLIGRAM DAILY; 20 IN THE MORNING, 20 IN THE EVENING?20
     Route: 065
     Dates: start: 2014
  15. NOVAMINSULFON [Suspect]
     Active Substance: METAMIZOLE
     Dosage: 2-3X DAILY 20-30 DROPS
     Route: 065
     Dates: start: 2014
  16. NOVORAPID [Suspect]
     Active Substance: INSULIN ASPART
     Dosage: MORNING 24, NOON 18, EVENING 20
     Route: 065
     Dates: start: 2018
  17. TORASEMID 20 [Suspect]
     Active Substance: TORSEMIDE
     Route: 065
     Dates: start: 2012
  18. NOVORAPID [Suspect]
     Active Substance: INSULIN ASPART
     Dosage: MORNING 24, NOON 18, EVENING 20
     Dates: start: 2014

REACTIONS (13)
  - Peripheral swelling [Unknown]
  - Chest discomfort [Unknown]
  - Myalgia [Unknown]
  - Skin haemorrhage [Unknown]
  - Spinal pain [Unknown]
  - Pelvic pain [Unknown]
  - Blood glucose increased [Unknown]
  - Morning sickness [Unknown]
  - Dyspnoea [Unknown]
  - Muscle spasms [Unknown]
  - Dyspnoea exertional [Unknown]
  - Rectal tenesmus [Unknown]
  - Asthenia [Unknown]

NARRATIVE: CASE EVENT DATE: 201809
